FAERS Safety Report 17186670 (Version 2)
Quarter: 2022Q2

REPORT INFORMATION
  Report Type: Spontaneous
  Country: GR (occurrence: None)
  Receive Date: 20191220
  Receipt Date: 20220411
  Transmission Date: 20220721
  Serious: Yes (Hospitalization, Disabling, Other)
  Sender: FDA-Public Use
  Company Number: 2019SF83938

PATIENT
  Age: 58 Year
  Sex: Male

DRUGS (3)
  1. BUDESONIDE [Interacting]
     Active Substance: BUDESONIDE
     Indication: Cough
     Route: 055
  2. BUDESONIDE [Interacting]
     Active Substance: BUDESONIDE
     Indication: Dyspnoea
     Route: 055
  3. RITONAVIR [Interacting]
     Active Substance: RITONAVIR
     Route: 065

REACTIONS (3)
  - Drug interaction [Recovering/Resolving]
  - Cushing^s syndrome [Recovering/Resolving]
  - Adrenal insufficiency [Recovering/Resolving]
